FAERS Safety Report 10416662 (Version 1)
Quarter: 2014Q3

REPORT INFORMATION
  Report Type: Spontaneous
  Country: FR (occurrence: FR)
  Receive Date: 20140828
  Receipt Date: 20140828
  Transmission Date: 20150326
  Serious: Yes (Death)
  Sender: FDA-Public Use
  Company Number: PHHY2014FR107426

PATIENT
  Age: 84 Year
  Sex: Male

DRUGS (7)
  1. PRITOR [Concomitant]
     Active Substance: TELMISARTAN
     Dosage: 80 MG, UNK
     Route: 048
  2. KARDEGIC [Concomitant]
     Active Substance: ASPIRIN LYSINE
     Dosage: 75 MG, UNK
     Route: 048
  3. ELISOR [Concomitant]
     Active Substance: PRAVASTATIN SODIUM
     Dosage: 40 MG, UNK
     Route: 048
  4. PIASCLEDINE                        /01305801/ [Concomitant]
     Dosage: UNK UKN, UNK
  5. GLIVEC [Suspect]
     Active Substance: IMATINIB MESYLATE
     Indication: CHRONIC MYELOID LEUKAEMIA
     Dosage: 400 MG, QD
     Route: 048
     Dates: start: 20140521, end: 20140620
  6. LERCAN [Concomitant]
     Active Substance: LERCANIDIPINE
     Dosage: 10 MG, UNK
     Route: 048
  7. XATRAL [Concomitant]
     Active Substance: ALFUZOSIN
     Dosage: UNK UKN, UNK

REACTIONS (2)
  - Tumour lysis syndrome [Fatal]
  - Renal tubular disorder [Fatal]

NARRATIVE: CASE EVENT DATE: 20140625
